FAERS Safety Report 9891360 (Version 2)
Quarter: 2014Q2

REPORT INFORMATION
  Report Type: Spontaneous
  Country: US (occurrence: US)
  Receive Date: 20140212
  Receipt Date: 20140523
  Transmission Date: 20141212
  Serious: No
  Sender: FDA-Public Use
  Company Number: US-PFIZER INC-2014039128

PATIENT
  Age: 55 Year
  Sex: Female
  Weight: 43.1 kg

DRUGS (9)
  1. CALAN SR [Suspect]
     Indication: RAYNAUD^S PHENOMENON
     Dosage: 180 MG, 1X/DAY
     Route: 048
  2. CYCLOBENZAPRINE HCL [Concomitant]
     Dosage: 10 MG, BID
     Route: 048
  3. DILAUDID [Concomitant]
     Dosage: 2 MG, UNK
     Route: 048
  4. SYNTHROID [Concomitant]
     Dosage: 1 DF, UNK
     Route: 048
  5. BUMETANIDE [Concomitant]
     Dosage: UNK
  6. VITAMIN D3 [Concomitant]
     Dosage: 2000 IU, QD
     Route: 048
  7. NASONEX [Concomitant]
     Dosage: 1 DF, UNK
     Route: 045
  8. POTASSIUM CHLORIDE [Concomitant]
     Dosage: 20 MEQ, 3 TAB DAILY
     Route: 048
  9. CALCIUM + VIT D [Concomitant]
     Dosage: 1 DF, UNK
     Route: 048

REACTIONS (2)
  - Tinnitus [Recovered/Resolved]
  - Off label use [Unknown]
